FAERS Safety Report 20290952 (Version 2)
Quarter: 2022Q1

REPORT INFORMATION
  Report Type: Spontaneous
  Country: DE (occurrence: DE)
  Receive Date: 20220104
  Receipt Date: 20220110
  Transmission Date: 20220423
  Serious: Yes (Hospitalization)
  Sender: FDA-Public Use
  Company Number: DE-ADRED-06940-01

PATIENT
  Age: 68 Year
  Sex: Female

DRUGS (14)
  1. DOCETAXEL [Suspect]
     Active Substance: DOCETAXEL
     Indication: Product used for unknown indication
     Dosage: 75 MILLIGRAM, ON THE NINETEENTH OF MA
     Route: 042
  2. DOCETAXEL [Suspect]
     Active Substance: DOCETAXEL
     Dosage: PAUSED ON THE NINTH OF JUNE DUE TO ADVERSE EVENT, SOLUTION FOR INJECTION
     Route: 042
  3. TRASTUZUMAB [Suspect]
     Active Substance: TRASTUZUMAB
     Indication: Product used for unknown indication
     Dosage: 515 MILLIGRAM, PAUSED ON THE NINTH OF JUNE
     Route: 042
  4. TRASTUZUMAB [Suspect]
     Active Substance: TRASTUZUMAB
     Dosage: 670 MILLIGRAM, ON THE NINETEENTH OF MA
     Route: 042
  5. PERTUZUMAB [Suspect]
     Active Substance: PERTUZUMAB
     Indication: Product used for unknown indication
     Dosage: 840 MILLIGRAM, ON THE NINETEENTH OF MAY
     Route: 042
  6. PERTUZUMAB [Suspect]
     Active Substance: PERTUZUMAB
     Dosage: 420 MILLIGRAM, PAUSED ON THE NINTH OF JUNE
     Route: 042
  7. PREGABALIN [Concomitant]
     Active Substance: PREGABALIN
     Dosage: 25 MILLIGRAM, QD, 0-0-1-0, KAPSELN
     Route: 048
  8. VITAMIN D [Concomitant]
     Active Substance: VITAMIN D NOS
     Dosage: 1000 IE, 1-0-0-0, KAPSELN
     Route: 048
  9. FENTANYL [Concomitant]
     Active Substance: FENTANYL
     Dosage: 0.2 MILLIGRAM, BIS DREIMAL PRO TAG BEI BEDARF, SCHMELZTABLETTEN
     Route: 060
  10. NALOXONE HYDROCHLORIDE\OXYCODONE HYDROCHLORIDE [Concomitant]
     Active Substance: NALOXONE HYDROCHLORIDE\OXYCODONE HYDROCHLORIDE
     Dosage: 5|10 MG, 1-0-2-0, RETARD-KAPSELN
     Route: 048
  11. METAMIZOL [Concomitant]
     Active Substance: METAMIZOLE SODIUM
     Dosage: 500 MILLIGRAM, QID, 1-1-1-1, TABLETTEN
     Route: 048
  12. ZOLEDRONIC ACID [Concomitant]
     Active Substance: ZOLEDRONIC ACID
     Dosage: 4 MILLIGRAM, ALLE DREI BIS VIER WOCHEN, INJEKTIONS
     Route: 042
  13. DEXAMETHASONE [Concomitant]
     Active Substance: DEXAMETHASONE
     Dosage: 4 MILLIGRAM, BID, 1-0-1-0, TABLETTEN
     Route: 048
  14. PANTOPRAZOLE SODIUM [Concomitant]
     Active Substance: PANTOPRAZOLE SODIUM
     Dosage: 40 MILLIGRAM, QD,1-0-0-0, TABLETTEN
     Route: 048

REACTIONS (3)
  - Oesophageal pain [Unknown]
  - Dysphagia [Unknown]
  - Vomiting [Unknown]
